FAERS Safety Report 7068706-6 (Version None)
Quarter: 2010Q4

REPORT INFORMATION
  Report Type: 
  Country: None (occurrence: None)
  Receive Date: 20101028
  Receipt Date: 20101021
  Transmission Date: 20110411
  Serious: Yes (Hospitalization, Other)
  Sender: FDA-Public Use
  Company Number: US-PFIZER INC-2009162432

PATIENT
  Sex: Female

DRUGS (3)
  1. SOLU-MEDROL [Suspect]
     Indication: MULTIPLE SCLEROSIS
     Dosage: UNK
     Dates: start: 20070401
  2. COPAXONE [Suspect]
     Indication: MULTIPLE SCLEROSIS
     Dosage: 20 MG, UNK
     Route: 058
     Dates: start: 20070801, end: 20080501
  3. NOVANTRONE [Suspect]
     Indication: MULTIPLE SCLEROSIS
     Dosage: UNK
     Route: 042
     Dates: start: 20070801, end: 20080515

REACTIONS (6)
  - ACCIDENT [None]
  - ASTHMA [None]
  - BLADDER DISORDER [None]
  - HEADACHE [None]
  - STAPHYLOCOCCAL INFECTION [None]
  - UPPER RESPIRATORY TRACT INFECTION [None]
